FAERS Safety Report 6465122-2 (Version None)
Quarter: 2009Q4

REPORT INFORMATION
  Report Type: 
  Country: None (occurrence: None)
  Receive Date: 20091116
  Receipt Date: 20091106
  Transmission Date: 20100525
  Serious: Yes (Other)
  Sender: FDA-Public Use
  Company Number: 2009GR_BP3442

PATIENT
  Age: 81 Year
  Sex: Female

DRUGS (5)
  1. TERBINAFINE HCL [Suspect]
     Indication: NAIL INFECTION
     Dosage: 125 MG ORAL
     Route: 048
     Dates: start: 20090301, end: 20090728
  2. BENDROFLUMETHIAZIDE [Concomitant]
  3. DOXAZOSIN [Concomitant]
  4. RABEPRAZOLE [Concomitant]
  5. WARFARIN SODIUM [Concomitant]

REACTIONS (2)
  - MUSCULOSKELETAL PAIN [None]
  - MUSCULOSKELETAL STIFFNESS [None]
